FAERS Safety Report 8459912-4 (Version None)
Quarter: 2012Q2

REPORT INFORMATION
  Report Type: 
  Country: None (occurrence: None)
  Receive Date: 20120622
  Receipt Date: 20120619
  Transmission Date: 20120825
  Serious: Yes (Other)
  Sender: FDA-Public Use
  Company Number: PHFR2012GB003051

PATIENT
  Sex: Female
  Weight: 52 kg

DRUGS (1)
  1. IMATINIB MESYLATE [Suspect]
     Dosage: UNK UKN, UNK
     Route: 048
     Dates: start: 20120201

REACTIONS (3)
  - CEREBRAL ISCHAEMIA [None]
  - ASTHENIA [None]
  - VISUAL IMPAIRMENT [None]
